FAERS Safety Report 9508727 (Version 1)
Quarter: 2013Q3

REPORT INFORMATION
  Report Type: Spontaneous
  Country: US (occurrence: US)
  Receive Date: 20130909
  Receipt Date: 20130909
  Transmission Date: 20140515
  Serious: No
  Sender: FDA-Public Use
  Company Number: US-BAUSCH-BL-2013-002205

PATIENT
  Age: 36 Year
  Sex: Female

DRUGS (1)
  1. NEOMYCIN AND POLYMYXIN B SULFATES AND DEXAMETHASONE OPHTHALMIC OINTMEN [Suspect]
     Indication: CHALAZION
     Dosage: 1 RIBBON IN LEFT EYE, FOUR TIMES PER DAY
     Route: 047
     Dates: start: 20121127, end: 20121231

REACTIONS (1)
  - Deafness [Not Recovered/Not Resolved]
